FAERS Safety Report 11357782 (Version 1)
Quarter: 2015Q3

REPORT INFORMATION
  Report Type: Spontaneous
  Country: US (occurrence: US)
  Receive Date: 20150803
  Receipt Date: 20150803
  Transmission Date: 20151125
  Serious: No
  Sender: FDA-Public Use
  Company Number: US-ELI_LILLY_AND_COMPANY-US201012003609

PATIENT
  Age: 52 Year
  Sex: Female

DRUGS (10)
  1. ZYPREXA [Suspect]
     Active Substance: OLANZAPINE
     Indication: SUICIDAL IDEATION
     Dosage: 5 MG, EACH MORNING
     Dates: start: 2009, end: 20101207
  2. KLONOPIN [Concomitant]
     Active Substance: CLONAZEPAM
  3. ZYPREXA [Suspect]
     Active Substance: OLANZAPINE
     Dosage: 10 MG, OTHER
  4. NORCO [Concomitant]
     Active Substance: ACETAMINOPHEN\HYDROCODONE BITARTRATE
  5. RESTORIL [Concomitant]
     Active Substance: TEMAZEPAM
  6. PRILOSEC [Concomitant]
     Active Substance: OMEPRAZOLE MAGNESIUM
  7. ESTRACE [Concomitant]
     Active Substance: ESTRADIOL
  8. HYDROCHLOROTHIAZID [Concomitant]
     Active Substance: HYDROCHLOROTHIAZIDE
  9. LASIX [Concomitant]
     Active Substance: FUROSEMIDE
  10. TRAZODONE [Concomitant]
     Active Substance: TRAZODONE HYDROCHLORIDE

REACTIONS (8)
  - Hypertension [Unknown]
  - Feeling abnormal [Unknown]
  - Confusional state [Unknown]
  - Panic attack [Unknown]
  - Insomnia [Unknown]
  - Off label use [Recovered/Resolved]
  - Decreased appetite [Unknown]
  - Depression [Unknown]

NARRATIVE: CASE EVENT DATE: 2009
